FAERS Safety Report 19236373 (Version 6)
Quarter: 2021Q3

REPORT INFORMATION
  Report Type: Report from Study
  Country: MX (occurrence: MX)
  Receive Date: 20210510
  Receipt Date: 20210813
  Transmission Date: 20211014
  Serious: Yes (Hospitalization)
  Sender: FDA-Public Use
  Company Number: MX-ROCHE-2786672

PATIENT
  Age: 35 Year
  Sex: Female
  Weight: 60 kg

DRUGS (46)
  1. INTERFERON BETA?1A [Suspect]
     Active Substance: INTERFERON BETA-1A
     Indication: RELAPSING-REMITTING MULTIPLE SCLEROSIS
     Route: 058
     Dates: start: 20121120, end: 20121120
  2. METHYLPREDNISOLONE. [Concomitant]
     Active Substance: METHYLPREDNISOLONE
     Dates: start: 20130725, end: 20130727
  3. MOMETASONE [Concomitant]
     Active Substance: MOMETASONE
     Indication: RHINITIS ALLERGIC
     Dosage: 1 SPRAY
     Dates: start: 20190516, end: 20200520
  4. METHYLPREDNISOLONE. [Concomitant]
     Active Substance: METHYLPREDNISOLONE
     Dates: start: 20130411, end: 20130413
  5. METHYLPREDNISOLONE. [Concomitant]
     Active Substance: METHYLPREDNISOLONE
     Dates: start: 20131119, end: 20131123
  6. OCRELIZUMAB. [Suspect]
     Active Substance: OCRELIZUMAB
     Dosage: SUBSEQUENT DOSE: OLE WEEK 48 (15/OCT/2015, 1148841), OLE WEEK 72 (17/MAR/2016, 1149034), OLE WEEK 96
     Route: 042
     Dates: start: 20150505, end: 20150505
  7. OMEPRAZOLE. [Concomitant]
     Active Substance: OMEPRAZOLE
     Indication: GASTROINTESTINAL DISORDER PROPHYLAXIS
     Dates: start: 20130725, end: 20130825
  8. OMEPRAZOLE. [Concomitant]
     Active Substance: OMEPRAZOLE
     Dates: start: 20140117, end: 20140121
  9. OMEPRAZOLE. [Concomitant]
     Active Substance: OMEPRAZOLE
     Dates: start: 20130411, end: 20130418
  10. OMEPRAZOLE. [Concomitant]
     Active Substance: OMEPRAZOLE
     Dates: start: 20130507, end: 20130514
  11. SALICYLIC ACID. [Concomitant]
     Active Substance: SALICYLIC ACID
     Indication: COVID-19
     Dates: start: 20210116, end: 20210304
  12. ACETAMINOPHEN. [Concomitant]
     Active Substance: ACETAMINOPHEN
     Dosage: BASELINE (WEEK 1), (WEEK 2, 19/DEC/2012), (WEEK 24, 28/MAY/2013).
     Dates: start: 20121120
  13. DIPHENHYDRAMINE. [Concomitant]
     Active Substance: DIPHENHYDRAMINE
     Dosage: BASELINE (WEEK 1), (WEEK 2, 19/DEC/2012), (WEEK 24, 28/MAY/2013),(WEEK 72, 15/APR/2014), (OLE?WEEK 0
     Dates: start: 20121120
  14. METHYLPREDNISOLONE. [Concomitant]
     Active Substance: METHYLPREDNISOLONE
     Dates: start: 20140702, end: 20140704
  15. VENLAFAXINE [Concomitant]
     Active Substance: VENLAFAXINE HYDROCHLORIDE
     Indication: INSOMNIA
     Dates: start: 20191007, end: 20210315
  16. FERROUS FUMARATE [Concomitant]
     Active Substance: FERROUS FUMARATE
     Indication: ANAEMIA
     Dates: start: 20210307
  17. VORTIOXETINE. [Concomitant]
     Active Substance: VORTIOXETINE
     Indication: DEPRESSION
     Dates: start: 20210316
  18. METRONIDAZOLE;MICONAZOLE NITRATE [Concomitant]
     Dosage: 1 OVULI
     Dates: start: 20201010, end: 20201018
  19. INTERFERON BETA?1A [Suspect]
     Active Substance: INTERFERON BETA-1A
     Dosage: MOST RECENT DOSE RECEIVED: 21/SEP/2014
     Route: 058
     Dates: start: 20140827, end: 20140921
  20. METHYLPREDNISOLONE. [Concomitant]
     Active Substance: METHYLPREDNISOLONE
     Dates: start: 20130111, end: 20130113
  21. METHYLPREDNISOLONE. [Concomitant]
     Active Substance: METHYLPREDNISOLONE
     Dates: start: 20130507, end: 20130511
  22. PARACETAMOL [Concomitant]
     Active Substance: ACETAMINOPHEN
     Dates: start: 20160828, end: 20160828
  23. SENNOSIDES. [Concomitant]
     Active Substance: SENNOSIDES
     Indication: CONSTIPATION
     Dates: start: 201612
  24. SENNOSIDES. [Concomitant]
     Active Substance: SENNOSIDES
     Dates: start: 201304, end: 201612
  25. OFLOXACIN. [Concomitant]
     Active Substance: OFLOXACIN
     Indication: UROSEPSIS
     Dates: start: 20200507
  26. PLACEBO [Suspect]
     Active Substance: UNSPECIFIED INGREDIENT
     Indication: RELAPSING-REMITTING MULTIPLE SCLEROSIS
     Dosage: SUBSEQUENT DOSE WAS RECEIVED: 19/DEC/2012 (11:20?14:00) INTERRUPTED AND RESTARTED (12:20?12:22)
     Route: 042
     Dates: start: 20121120, end: 20121120
  27. PLACEBO [Suspect]
     Active Substance: UNSPECIFIED INGREDIENT
     Dosage: SUBSEQUENT DOSE WAS RECEIVED ON: 21/DEC/2013 (12:06?15:47), 15/APR/2014 (12:45?16:30).
     Route: 042
     Dates: start: 20130528, end: 20130528
  28. OCRELIZUMAB. [Suspect]
     Active Substance: OCRELIZUMAB
     Indication: RELAPSING-REMITTING MULTIPLE SCLEROSIS
     Dosage: SUBSEQUENT DOSE: OLE  WEEK 2 (11/NOV/2014, 1107491)
     Route: 042
     Dates: start: 20141028, end: 20141028
  29. METHYLPREDNISOLONE. [Concomitant]
     Active Substance: METHYLPREDNISOLONE
     Dates: start: 20210302, end: 20210302
  30. PARACETAMOL [Concomitant]
     Active Substance: ACETAMINOPHEN
     Dates: start: 20210304, end: 20210322
  31. PARACETAMOL [Concomitant]
     Active Substance: ACETAMINOPHEN
     Dates: start: 201501, end: 20160311
  32. PARACETAMOL [Concomitant]
     Active Substance: ACETAMINOPHEN
     Dates: start: 20210323
  33. PARACETAMOL [Concomitant]
     Active Substance: ACETAMINOPHEN
     Dates: start: 20121120, end: 201410
  34. OMEPRAZOLE. [Concomitant]
     Active Substance: OMEPRAZOLE
     Dates: start: 20121204, end: 20121219
  35. OMEPRAZOLE. [Concomitant]
     Active Substance: OMEPRAZOLE
     Dates: start: 20160817
  36. METHYLPREDNISOLONE. [Concomitant]
     Active Substance: METHYLPREDNISOLONE
     Indication: MULTIPLE SCLEROSIS RELAPSE
     Dosage: BASELINE (WEEK 1), (WEEK 2, 19/DEC/2012), (WEEK 24, 28/MAY/2013), (WEEK 72, 15/APR/2014), (OLE?WEEK
     Dates: start: 20121120, end: 20121120
  37. METHYLPREDNISOLONE. [Concomitant]
     Active Substance: METHYLPREDNISOLONE
     Dates: start: 20141009, end: 20141011
  38. METHYLPREDNISOLONE. [Concomitant]
     Active Substance: METHYLPREDNISOLONE
     Dates: start: 20210306, end: 20210309
  39. PARACETAMOL [Concomitant]
     Active Substance: ACETAMINOPHEN
     Indication: HEADACHE
     Dosage: SUBSEQUENT DOSE: (WEEK 72, 15/APR/2014), (OLE?WEEK 0, 28/OCT/2014) (OLE WEEK 2, 11/NOV/2014), (OLE?W
     Dates: start: 20140415, end: 20140415
  40. OMEPRAZOLE. [Concomitant]
     Active Substance: OMEPRAZOLE
     Indication: MULTIPLE SCLEROSIS RELAPSE
     Dates: start: 20131119, end: 20131128
  41. OMEPRAZOLE. [Concomitant]
     Active Substance: OMEPRAZOLE
     Dates: start: 20140109, end: 20140114
  42. OMEPRAZOLE. [Concomitant]
     Active Substance: OMEPRAZOLE
     Dates: start: 20150414, end: 201508
  43. OMEPRAZOLE. [Concomitant]
     Active Substance: OMEPRAZOLE
     Dates: start: 201508, end: 20160311
  44. MOMETASONE [Concomitant]
     Active Substance: MOMETASONE
     Dosage: 1 INHALATION
     Dates: start: 20200521
  45. SENNOSIDES. [Concomitant]
     Active Substance: SENNOSIDES
     Dates: start: 20200401
  46. CARBOXYMETHYLCELLULOSE [Concomitant]
     Active Substance: CARBOXYMETHYLCELLULOSE
     Dosage: 1 DROP
     Dates: start: 20200921

REACTIONS (1)
  - Atypical pneumonia [Recovered/Resolved]

NARRATIVE: CASE EVENT DATE: 20210306
